FAERS Safety Report 18752515 (Version 1)
Quarter: 2021Q1

REPORT INFORMATION
  Report Type: Report from Study
  Country: US (occurrence: US)
  Receive Date: 20210118
  Receipt Date: 20210118
  Transmission Date: 20210419
  Serious: Yes (Death, Hospitalization, Other)
  Sender: FDA-Public Use
  Company Number: US-BRISTOL-MYERS SQUIBB COMPANY-BMS-2021-003701

PATIENT
  Age: 77 Year
  Sex: Male
  Weight: 64.6 kg

DRUGS (4)
  1. OXALIPLATIN. [Suspect]
     Active Substance: OXALIPLATIN
     Indication: GASTRIC CANCER
     Dosage: 400 MILLIGRAM/SQ. METER, Q2WK
     Route: 042
     Dates: start: 20200708, end: 20201007
  2. FLUOROURACIL. [Suspect]
     Active Substance: FLUOROURACIL
     Indication: GASTRIC CANCER
     Dosage: 2800 MILLIGRAM/SQ. METER, Q2WK
     Route: 042
     Dates: start: 20200708, end: 20201007
  3. LEUCOVORIN CALCIUM. [Suspect]
     Active Substance: LEUCOVORIN CALCIUM
     Indication: GASTRIC CANCER
     Dosage: 85 MILLIGRAM/SQ. METER, Q2WK
     Route: 042
     Dates: start: 20200708, end: 20201007
  4. NIVOLUMAB [Suspect]
     Active Substance: NIVOLUMAB
     Indication: GASTRIC CANCER
     Dosage: 240 MILLIGRAM, BID
     Route: 042
     Dates: start: 20200708, end: 20201104

REACTIONS (4)
  - Malignant neoplasm progression [Fatal]
  - Encephalopathy [Unknown]
  - Cerebrovascular accident [Unknown]
  - Pulmonary sepsis [Unknown]

NARRATIVE: CASE EVENT DATE: 20201226
